FAERS Safety Report 10404369 (Version 1)
Quarter: 2014Q3

REPORT INFORMATION
  Report Type: Report from Study
  Country: BR (occurrence: BR)
  Receive Date: 20140823
  Receipt Date: 20140823
  Transmission Date: 20150326
  Serious: Yes (Other)
  Sender: FDA-Public Use
  Company Number: PHHY2014BR104631

PATIENT
  Age: 35 Year
  Sex: Female
  Weight: 68 kg

DRUGS (4)
  1. RETEMIC [Concomitant]
     Active Substance: OXYBUTYNIN
     Dosage: 3 DF, DAILY
  2. VENLAXIN [Concomitant]
     Dosage: 1 DF, DAILY
  3. GILENYA [Suspect]
     Active Substance: FINGOLIMOD HYDROCHLORIDE
     Route: 048
     Dates: start: 201402
  4. DONAREN [Concomitant]
     Active Substance: TRAZODONE HYDROCHLORIDE
     Dosage: 1 DF, DAILY

REACTIONS (2)
  - Central nervous system lesion [Unknown]
  - Urinary tract infection [Unknown]

NARRATIVE: CASE EVENT DATE: 201407
